FAERS Safety Report 7528043-X (Version None)
Quarter: 2011Q2

REPORT INFORMATION
  Report Type: 
  Country: None (occurrence: None)
  Receive Date: 20110517
  Receipt Date: 20100730
  Transmission Date: 20111010
  Serious: Yes (Other)
  Sender: FDA-Public Use
  Company Number: ALL1-2010-04090

PATIENT
  Age: 44 Year
  Sex: Female
  Weight: 87.5 kg

DRUGS (10)
  1. SOMA [Concomitant]
  2. FOSRENOL [Suspect]
     Indication: HYPERPHOSPHATAEMIA
     Dosage: 1000MG, OTHER (WITH MEALS AND SNACKS), ORAL
     Route: 048
     Dates: start: 20100524, end: 20100701
  3. NEPHROCAPS (ASCORBIC ACID, BIOTIN, CYANOCOBALAMIN, FOLIC ACID, NICOTIN [Concomitant]
  4. HECOTROL (DOXERCALCIFEROL) [Concomitant]
  5. UNSPECIFIED BLOOD PRESSURE MEDICATIONS [Concomitant]
  6. NEURONTIN [Concomitant]
  7. TUMS (CALCIUM CARBONATE) [Concomitant]
  8. SENSIPAR [Concomitant]
  9. PERCOCET (PARACETAMOL, OXYCODONE HYDROCHLORIDE, OXYCODONE TETRAPHTHALA [Concomitant]
  10. PAXIL [Concomitant]

REACTIONS (4)
  - CONSTIPATION [None]
  - DIZZINESS POSTURAL [None]
  - HYPOTENSION [None]
  - HEADACHE [None]
